FAERS Safety Report 8375205-8 (Version None)
Quarter: 2012Q2

REPORT INFORMATION
  Report Type: 
  Country: None (occurrence: None)
  Receive Date: 20120522
  Receipt Date: 20120515
  Transmission Date: 20120825
  Serious: Yes (Other)
  Sender: FDA-Public Use
  Company Number: TR-AMGEN-TURSP2012031069

PATIENT
  Age: 32 Year
  Sex: Female

DRUGS (2)
  1. SULFASALAZINE [Concomitant]
     Dosage: UNK
     Route: 048
     Dates: start: 20060101
  2. ENBREL [Suspect]
     Indication: ANKYLOSING SPONDYLITIS
     Dosage: 50 MG, WEEKLY
     Route: 058
     Dates: start: 20060101, end: 20120101

REACTIONS (1)
  - CERVIX CARCINOMA [None]
